FAERS Safety Report 5089609-2 (Version None)
Quarter: 2006Q3

REPORT INFORMATION
  Report Type: 
  Country: None (occurrence: None)
  Receive Date: 20060822
  Receipt Date: 20060807
  Transmission Date: 20061208
  Serious: Yes (Life-Threatening, Other)
  Sender: FDA-Public Use
  Company Number: MC200600540

PATIENT

DRUGS (2)
  1. ANGIOMAX [Suspect]
     Indication: CORONARY ARTERY BYPASS
     Dates: start: 20060101
  2. HEPARIN [Suspect]
     Indication: CORONARY ARTERY BYPASS
     Dates: start: 20060801

REACTIONS (5)
  - CARDIAC TAMPONADE [None]
  - COAGULATION TIME PROLONGED [None]
  - DRUG INEFFECTIVE [None]
  - DRUG INTERACTION [None]
  - HAEMORRHAGE [None]
